FAERS Safety Report 13061775 (Version 6)
Quarter: 2018Q1

REPORT INFORMATION
  Report Type: Spontaneous
  Country: DE (occurrence: DE)
  Receive Date: 20161226
  Receipt Date: 20180301
  Transmission Date: 20180508
  Serious: Yes (Death, Hospitalization, Other)
  Sender: FDA-Public Use
  Company Number: DE-SUN PHARMACEUTICAL INDUSTRIES LTD-2016RR-130050

PATIENT
  Age: 79 Year
  Sex: Female
  Weight: 50 kg

DRUGS (5)
  1. PRADAXA [Suspect]
     Active Substance: DABIGATRAN ETEXILATE MESYLATE
     Dosage: 220 MG, DAILY
     Route: 048
  2. PRAXBIND [Suspect]
     Active Substance: IDARUCIZUMAB
     Indication: HAEMORRHAGE
     Dosage: UNK
     Route: 065
  3. PRADAXA [Suspect]
     Active Substance: DABIGATRAN ETEXILATE MESYLATE
     Indication: CEREBROVASCULAR ACCIDENT
     Dosage: 110 MG, BID
     Route: 048
  4. PRADAXA [Suspect]
     Active Substance: DABIGATRAN ETEXILATE MESYLATE
     Dosage: 300 MG, DAILY
     Route: 048
  5. CLOPIDOGREL [Suspect]
     Active Substance: CLOPIDOGREL BISULFATE
     Indication: CEREBROVASCULAR ACCIDENT
     Dosage: 75 MG, QD
     Route: 065

REACTIONS (17)
  - Haemorrhage [Not Recovered/Not Resolved]
  - Coagulopathy [Unknown]
  - Vomiting [Unknown]
  - Ileus paralytic [Fatal]
  - Coagulation time prolonged [Unknown]
  - Gastrointestinal haemorrhage [Fatal]
  - Activated partial thromboplastin time prolonged [Unknown]
  - Coagulopathy [Fatal]
  - Haemorrhage [Fatal]
  - Anaemia [Unknown]
  - Rectal perforation [Unknown]
  - Creatinine renal clearance decreased [Unknown]
  - Coagulation factor increased [Unknown]
  - Peritonitis [Unknown]
  - Abdominal discomfort [Unknown]
  - Prothrombin time prolonged [Unknown]
  - Abdominal pain [Unknown]
